FAERS Safety Report 4339306-3 (Version None)
Quarter: 2004Q2

REPORT INFORMATION
  Report Type: 
  Country: None (occurrence: None)
  Receive Date: 20040414
  Receipt Date: 20040414
  Transmission Date: 20050107
  Serious: Yes (Other)
  Sender: FDA-Public Use
  Company Number: None

PATIENT
  Sex: Female
  Weight: 97.5234 kg

DRUGS (19)
  1. OXYCODONE AND ACETAMINOPHEN [Suspect]
     Indication: SPINAL DISORDER
     Dosage: 1 TABLET EVERY 4 HO ORAL
     Route: 048
     Dates: start: 20040311, end: 20040413
  2. FUROSEMIDE [Concomitant]
  3. EVISTA [Concomitant]
  4. AMARYL [Concomitant]
  5. VERAPAMIL [Concomitant]
  6. PROMETHAZINE [Concomitant]
  7. LISINOPRIL AND HYDROCHLOROTHIAZIDE [Concomitant]
  8. ASACOL [Concomitant]
  9. NEURONTIN [Concomitant]
  10. PREVACID [Concomitant]
  11. BEXTRA [Concomitant]
  12. ZELNORM [Concomitant]
  13. AMITRIPTYLINE HCL [Concomitant]
  14. WELLBUTRIN SR [Concomitant]
  15. FIORICET [Concomitant]
  16. CARISOPRODOL [Concomitant]
  17. HYDROC/APAP [Concomitant]
  18. ALBUTEROL [Concomitant]
  19. ZOFRAN [Concomitant]

REACTIONS (2)
  - DRUG INEFFECTIVE [None]
  - PHARMACEUTICAL PRODUCT COMPLAINT [None]
